FAERS Safety Report 8630865 (Version 3)
Quarter: 2012Q4

REPORT INFORMATION
  Report Type: Spontaneous
  Country: US (occurrence: None)
  Receive Date: 20120615
  Receipt Date: 20120824
  Transmission Date: 20130627
  Serious: Yes (Other)
  Sender: FDA-Public Use
  Company Number: 1206-306

PATIENT
  Age: 84 Year
  Sex: Female

DRUGS (1)
  1. EYLEA [Suspect]
     Indication: AGE-RELATED MACULAR DEGENERATION
     Dosage: INTRAVITREAL
     Dates: start: 20120210, end: 20120622

REACTIONS (3)
  - Endophthalmitis [None]
  - Uveitis [None]
  - Inadequate aseptic technique in use of product [None]
